FAERS Safety Report 4309247-6 (Version None)
Quarter: 2004Q1

REPORT INFORMATION
  Report Type: 
  Country: None (occurrence: None)
  Receive Date: 20040301
  Receipt Date: 20040218
  Transmission Date: 20041129
  Serious: Yes (Death)
  Sender: FDA-Public Use
  Company Number: US-JNJFOC-20031205609

PATIENT
  Age: 37 Year
  Sex: Female

DRUGS (4)
  1. DURAGESIC [Suspect]
     Dosage: 75 UG/HR, 1 IN 48 HOUR, INJECTION
     Dates: end: 20031201
  2. ACTIQ [Concomitant]
  3. XANAX [Concomitant]
  4. LEXAPRO (ALL OTHER THERAPEUTIC PRODUCTS) [Concomitant]

REACTIONS (1)
  - MEDICATION ERROR [None]
